FAERS Safety Report 23925101 (Version 3)
Quarter: 2024Q3

REPORT INFORMATION
  Report Type: Report from Study
  Country: KR (occurrence: KR)
  Receive Date: 20240531
  Receipt Date: 20240722
  Transmission Date: 20241017
  Serious: Yes (Other)
  Sender: SANOFI AVENTIS
  Company Number: KR-SA-SAC20240527001154

PATIENT
  Age: 46 Year
  Sex: Female
  Weight: 77 kg

DRUGS (7)
  1. DUPILUMAB [Suspect]
     Active Substance: DUPILUMAB
     Indication: Asthma
     Dosage: 1 DF, Q2W
     Route: 058
     Dates: start: 20231013, end: 20240509
  2. FLUTICASONE FUROATE\VILANTEROL TRIFENATATE [Concomitant]
     Active Substance: FLUTICASONE FUROATE\VILANTEROL TRIFENATATE
     Indication: Asthma
     Dosage: 200/25 UG, QD
     Route: 055
     Dates: start: 20160708
  3. SPIRIVA RESPIMAT [Concomitant]
     Active Substance: TIOTROPIUM BROMIDE
     Indication: Asthma
     Dosage: 2 DOSE QD
     Route: 055
     Dates: start: 20181117
  4. NASAFLEX [Concomitant]
     Indication: Rhinitis allergic
     Dosage: UNK UNK, BID
     Route: 045
     Dates: start: 20211106
  5. KOPSUE [Concomitant]
     Indication: Rhinitis allergic
     Dosage: 1 DF, TID
     Route: 048
     Dates: start: 20240119
  6. FEXONADINE [Concomitant]
     Indication: Rhinitis allergic
     Dosage: 1 DF, QD
     Route: 048
     Dates: start: 20240509
  7. MONTERIZINE [Concomitant]
     Indication: Rhinitis allergic
     Dosage: 1 DF, QD
     Route: 048
     Dates: start: 20180126

REACTIONS (1)
  - Oedema [Recovered/Resolved]

NARRATIVE: CASE EVENT DATE: 20240426
